FAERS Safety Report 7779794-3 (Version None)
Quarter: 2011Q3

REPORT INFORMATION
  Report Type: 
  Country: None (occurrence: None)
  Receive Date: 20110927
  Receipt Date: 20110914
  Transmission Date: 20111222
  Serious: Yes (Disabling)
  Sender: FDA-Public Use
  Company Number: JP-JNJFOC-20110900545

PATIENT
  Sex: Female
  Weight: 53 kg

DRUGS (35)
  1. REMICADE [Suspect]
     Indication: RHEUMATOID ARTHRITIS
     Route: 042
     Dates: start: 20101214
  2. REMICADE [Suspect]
     Route: 042
     Dates: start: 20100916
  3. REMICADE [Suspect]
     Route: 042
     Dates: start: 20100902
  4. REMICADE [Suspect]
     Dosage: SIXTH DOSE OF INFLIXIMAB, RECOMBINANT
     Route: 042
     Dates: start: 20110412
  5. REMICADE [Suspect]
     Route: 042
     Dates: start: 20110215
  6. GASLON [Concomitant]
     Route: 048
     Dates: start: 20100104
  7. PRELONE [Concomitant]
     Route: 048
     Dates: start: 20110114
  8. MOVER [Concomitant]
     Route: 048
  9. PREDNISOLONE [Concomitant]
     Route: 048
     Dates: start: 20091228
  10. DEQUALINIUM [Concomitant]
     Dosage: TOTAL DAILY DOSE 3 MG
     Route: 048
     Dates: start: 20101012
  11. ISOTONIC SODIUM CHLORIDE SOLUTION [Concomitant]
     Route: 050
     Dates: start: 20101214, end: 20101214
  12. REMICADE [Suspect]
     Route: 042
     Dates: start: 20101016
  13. GASLON [Concomitant]
     Route: 048
     Dates: start: 20100125
  14. GASLON [Concomitant]
     Route: 048
     Dates: start: 20091228
  15. PREDNISOLONE [Concomitant]
     Route: 048
     Dates: start: 20110614
  16. PREDNISOLONE [Concomitant]
     Route: 048
     Dates: start: 20100104
  17. LIMETHASON [Concomitant]
     Route: 042
     Dates: start: 20091228
  18. CLARITHROMYCIN [Concomitant]
     Dosage: TOTAL DAILY DOSE 400 MG
     Route: 048
     Dates: start: 20101012
  19. KETOPROFEN [Concomitant]
     Route: 065
  20. REMICADE [Suspect]
     Route: 042
     Dates: start: 20101012
  21. KENACORT-A OPHTHALMIC OINTMENT [Concomitant]
     Route: 050
     Dates: start: 20100330
  22. ISOTONIC SODIUM CHLORIDE SOLUTION [Concomitant]
     Route: 042
     Dates: start: 20100114
  23. XYLOCAINE [Concomitant]
     Dates: start: 20100330
  24. ISOTONIC SODIUM CHLORIDE SOLUTION [Concomitant]
     Route: 050
     Dates: start: 20110412, end: 20110412
  25. REMICADE [Suspect]
     Route: 042
     Dates: start: 20110426, end: 20110610
  26. RHEUMATREX [Suspect]
     Indication: RHEUMATOID ARTHRITIS
     Route: 048
     Dates: start: 20110426, end: 20110610
  27. PREDNISOLONE [Concomitant]
     Route: 048
     Dates: start: 20100114
  28. RHEUMATREX [Suspect]
     Route: 048
     Dates: start: 20100125, end: 20110425
  29. NON-PYRINE COLD PREPARATION [Concomitant]
     Dosage: TOTAL DAILY DOSE 3 GM
     Route: 048
     Dates: start: 20101012
  30. INDOMETHACIN [Concomitant]
     Route: 065
  31. KENACORT-A OPHTHALMIC OINTMENT [Concomitant]
     Route: 050
     Dates: start: 20110531
  32. ISOTONIC SODIUM CHLORIDE SOLUTION [Concomitant]
     Route: 050
     Dates: start: 20101016, end: 20101016
  33. PRELONE [Concomitant]
     Route: 048
     Dates: start: 20110322
  34. SELTOUCH [Concomitant]
     Dates: start: 20100713
  35. ISOTONIC SODIUM CHLORIDE SOLUTION [Concomitant]
     Route: 050
     Dates: start: 20110215, end: 20110215

REACTIONS (3)
  - COUGH [None]
  - RHEUMATOID ARTHRITIS [None]
  - SOFT TISSUE MASS [None]
